FAERS Safety Report 4645435-7 (Version None)
Quarter: 2005Q2

REPORT INFORMATION
  Report Type: 
  Country: None (occurrence: None)
  Receive Date: 20050331
  Receipt Date: 20050210
  Transmission Date: 20051028
  Serious: Yes (Death)
  Sender: FDA-Public Use
  Company Number: 05P-163-0290119-00

PATIENT
  Age: 66 Year
  Sex: Female

DRUGS (13)
  1. HUMIRA [Suspect]
     Dosage: 40 MG, SUBCUTANEOUS
     Route: 058
     Dates: start: 20040414
  2. HYDROXYCHLOROQUINE PHOSPHATE [Concomitant]
  3. METOLAZONE [Concomitant]
  4. FUROSEMIDE [Concomitant]
  5. OXYBUTYNIN HYDROCHLORIDE [Concomitant]
  6. POTASSIUM CHLORIDE [Concomitant]
  7. PREDNISONE TAB [Concomitant]
  8. MULTI-VITAMINS [Concomitant]
  9. CALCIUM GLUCONATE [Concomitant]
  10. SUCRALFATE [Concomitant]
  11. ALLOPURINOL [Concomitant]
  12. IRON [Concomitant]
  13. CRANBERRY PILL [Concomitant]

REACTIONS (1)
  - DEATH [None]
